FAERS Safety Report 14294208 (Version 3)
Quarter: 2019Q1

REPORT INFORMATION
  Report Type: Report from Study
  Country: CA (occurrence: CA)
  Receive Date: 20171217
  Receipt Date: 20190131
  Transmission Date: 20190417
  Serious: Yes (Other)
  Sender: FDA-Public Use
  Company Number: PHHY2017CA188135

PATIENT
  Age: 82 Year
  Sex: Male

DRUGS (3)
  1. ENTRESTO [Suspect]
     Active Substance: SACUBITRIL\VALSARTAN
     Indication: CARDIAC FAILURE
     Dosage: 2 DF, UNK (SACUBITRIL 49MG/VALSARTAN 51MG)
     Route: 065
     Dates: start: 20170413, end: 20170606
  2. ENTRESTO [Suspect]
     Active Substance: SACUBITRIL\VALSARTAN
     Dosage: 2 DF, UNK (SACUBITRIL 97MG/ VALSARTAN 103MG)
     Route: 065
     Dates: start: 20170606, end: 20171005
  3. ENTRESTO [Suspect]
     Active Substance: SACUBITRIL\VALSARTAN
     Dosage: 2 DF, UNK (SACUBITRIL 49MG/VALSARTAN 51MG)
     Route: 065
     Dates: start: 20171005

REACTIONS (6)
  - Pulmonary oedema [Recovering/Resolving]
  - Diarrhoea [Unknown]
  - Peripheral swelling [Recovered/Resolved]
  - Urinary tract infection [Recovered/Resolved]
  - Dizziness [Recovered/Resolved]
  - Dyspnoea [Unknown]

NARRATIVE: CASE EVENT DATE: 20170523
